FAERS Safety Report 8458869-X (Version None)
Quarter: 2012Q2

REPORT INFORMATION
  Report Type: 
  Country: None (occurrence: None)
  Receive Date: 20120622
  Receipt Date: 20120621
  Transmission Date: 20120825
  Serious: Yes (Death, Hospitalization, Other)
  Sender: FDA-Public Use
  Company Number: FR-ROCHE-1023821

PATIENT
  Sex: Male

DRUGS (5)
  1. CELLCEPT [Suspect]
     Indication: RENAL TRANSPLANT
     Dates: start: 20060226, end: 20120319
  2. IRBESARTAN [Concomitant]
     Dates: start: 20060601
  3. BELATACEPT [Suspect]
     Indication: RENAL TRANSPLANT
     Dates: start: 20060226, end: 20120319
  4. PREDNISONE TAB [Suspect]
     Indication: RENAL TRANSPLANT
     Dates: start: 20060226, end: 20120319
  5. PLAVIX [Concomitant]
     Dates: start: 20060707

REACTIONS (4)
  - CARDIAC ARREST [None]
  - PNEUMONIA [None]
  - RESPIRATORY DISTRESS [None]
  - BRONCHOPNEUMONIA [None]
